FAERS Safety Report 17259661 (Version 1)
Quarter: 2019Q4

REPORT INFORMATION
  Report Type: Spontaneous
  Country: US (occurrence: US)
  Receive Date: 20191218
  Receipt Date: 20191218
  Transmission Date: 20200122
  Serious: No
  Sender: FDA-Public Use
  Company Number: None

PATIENT
  Age: 42 Year
  Sex: Male

DRUGS (1)
  1. TENOFOVIR DF 300MG TAB (X30) [Suspect]
     Active Substance: TENOFOVIR
     Route: 048
     Dates: start: 201805

REACTIONS (2)
  - Product dispensing error [None]
  - Incorrect dose administered [None]

NARRATIVE: CASE EVENT DATE: 20191218
